FAERS Safety Report 6007820-0 (Version None)
Quarter: 2008Q4

REPORT INFORMATION
  Report Type: 
  Country: None (occurrence: None)
  Receive Date: 20081217
  Receipt Date: 20080630
  Transmission Date: 20090506
  Serious: No
  Sender: FDA-Public Use
  Company Number: US-ASTRAZENECA-2008UW13110

PATIENT
  Age: 80 Year
  Sex: Female
  Weight: 54.4 kg

DRUGS (5)
  1. CRESTOR [Suspect]
     Indication: BLOOD CHOLESTEROL INCREASED
     Route: 048
     Dates: start: 20080101, end: 20080501
  2. CRESTOR [Suspect]
     Route: 048
     Dates: start: 20080601
  3. ASPIRIN [Concomitant]
     Route: 048
  4. ASPIRIN [Concomitant]
     Route: 048
  5. BENICAR [Concomitant]

REACTIONS (2)
  - CONTUSION [None]
  - MYALGIA [None]
